FAERS Safety Report 7365495-2 (Version None)
Quarter: 2011Q1

REPORT INFORMATION
  Report Type: 
  Country: None (occurrence: None)
  Receive Date: 20110322
  Receipt Date: 20110222
  Transmission Date: 20110831
  Serious: Yes (Other)
  Sender: FDA-Public Use
  Company Number: US-BAYER-201039928NA

PATIENT
  Sex: Female
  Weight: 85 kg

DRUGS (20)
  1. YAZ [Suspect]
     Indication: CONTRACEPTION
  2. GYNAZOLE [Concomitant]
  3. ACETAMINOPHEN AND HYDROCODONE BITARTRATE [Concomitant]
     Dosage: UNK
     Dates: start: 20071129
  4. MARCAINE [Concomitant]
     Dosage: 0.5 %, UNK
     Route: 042
     Dates: start: 20071129
  5. YAZ [Suspect]
     Indication: ACNE
     Dosage: 1 TAB/DAY
     Route: 048
     Dates: start: 20070214, end: 20080501
  6. AZITHROMYCIN [Concomitant]
     Dosage: 250 MG, UNK
     Dates: start: 20080408
  7. VERSED [Concomitant]
     Dosage: 5 MG, UNK
     Route: 042
     Dates: start: 20071129
  8. SULFAMETOXAZOL MED TRIMETOPRIM [Concomitant]
     Dosage: UNK
     Dates: start: 20071031
  9. ZEGERID [Concomitant]
     Dosage: 40 MG, UNK
     Dates: start: 20080409
  10. MEPERGAN [Concomitant]
     Dosage: 40 NOT APPL., UNK
     Dates: start: 20050505
  11. ROBINUL [Concomitant]
     Dosage: 0.4 MG, UNK
     Route: 042
     Dates: start: 20071129
  12. AZITHROMYCIN [Concomitant]
     Dosage: UNK
     Dates: start: 20080428
  13. FENTANYL [Concomitant]
     Dosage: 250 ?G, UNK
     Route: 042
     Dates: start: 20071129
  14. ZOFRAN [Concomitant]
     Dosage: 4 MG, UNK
     Route: 042
     Dates: start: 20071129
  15. BACTRIM DS [Concomitant]
     Dosage: UNK
     Dates: start: 20071113
  16. DESOXIMETASONE [Concomitant]
  17. DIPRIVAN [Concomitant]
     Dosage: 100 MG, UNK
     Route: 042
     Dates: start: 20071129
  18. LIDOCAINE [Concomitant]
     Dosage: 0.1 NOT APPL., UNK
     Route: 023
     Dates: start: 20071129
  19. SINGULAIR [Concomitant]
     Dosage: 10 MG, UNK
     Dates: start: 20080408
  20. REGLAN [Concomitant]
     Dosage: 20 MG, UNK
     Route: 042
     Dates: start: 20071129

REACTIONS (2)
  - CHOLECYSTITIS CHRONIC [None]
  - CHOLECYSTECTOMY [None]
